FAERS Safety Report 11856835 (Version 1)
Quarter: 2015Q4

REPORT INFORMATION
  Report Type: Spontaneous
  Country: DE (occurrence: DE)
  Receive Date: 20151221
  Receipt Date: 20151221
  Transmission Date: 20160305
  Serious: Yes (Other)
  Sender: FDA-Public Use
  Company Number: DE-FRESENIUS KABI-FK201506693

PATIENT
  Age: 8 Month
  Sex: Female

DRUGS (1)
  1. METHYLPREDNISOLONE (MANUFACTURER UNKNOWN) [Suspect]
     Active Substance: METHYLPREDNISOLONE
     Indication: EPILEPSY
     Route: 065

REACTIONS (3)
  - Cardiac septal hypertrophy [Unknown]
  - Product use issue [Unknown]
  - Nephrocalcinosis [Unknown]
